FAERS Safety Report 18746137 (Version 3)
Quarter: 2022Q1

REPORT INFORMATION
  Report Type: Report from Study
  Country: NL (occurrence: NL)
  Receive Date: 20210115
  Receipt Date: 20220221
  Transmission Date: 20220424
  Serious: Yes (Other)
  Sender: FDA-Public Use
  Company Number: NL-MYLANLABS-2020M1060028

PATIENT
  Sex: Female
  Weight: 80 kg

DRUGS (8)
  1. GLATIRAMER ACETATE [Suspect]
     Active Substance: GLATIRAMER ACETATE
     Indication: Relapsing multiple sclerosis
     Dosage: 40 MILLIGRAM, 3XW
     Route: 058
     Dates: start: 20200305
  2. PREDNISOLONE [Concomitant]
     Active Substance: PREDNISOLONE
     Dosage: 1000 MILLIGRAM
     Dates: start: 20201229
  3. PREDNISOLONE [Concomitant]
     Active Substance: PREDNISOLONE
     Dosage: 1000 MILLIGRAM
     Dates: start: 20201230
  4. PREDNISOLONE [Concomitant]
     Active Substance: PREDNISOLONE
     Dosage: 1000 MILLIGRAM
     Dates: start: 20201231
  5. LYRICA [Concomitant]
     Active Substance: PREGABALIN
     Dosage: 2 DOSAGE FORM (75MG IN DECEMBER, 2 TABLETS)
  6. ALPRAZOLAM [Concomitant]
     Active Substance: ALPRAZOLAM
     Dosage: UNK
  7. VENLAFAXINE [Concomitant]
     Active Substance: VENLAFAXINE HYDROCHLORIDE
     Dosage: UNK
  8. NORTRIPTYLINE [Concomitant]
     Active Substance: NORTRIPTYLINE
     Dosage: UNK

REACTIONS (8)
  - Optic neuritis [Not Recovered/Not Resolved]
  - Multiple sclerosis [Recovering/Resolving]
  - Musculoskeletal stiffness [Unknown]
  - Cystitis [Recovering/Resolving]
  - Dizziness [Not Recovered/Not Resolved]
  - Vision blurred [Recovered/Resolved]
  - Pain in extremity [Recovering/Resolving]
  - Amblyopia [Recovered/Resolved]

NARRATIVE: CASE EVENT DATE: 20200614
